FAERS Safety Report 12348256 (Version 2)
Quarter: 2016Q3

REPORT INFORMATION
  Report Type: Spontaneous
  Country: US (occurrence: US)
  Receive Date: 20160509
  Receipt Date: 20160712
  Transmission Date: 20161109
  Serious: Yes (Hospitalization)
  Sender: FDA-Public Use
  Company Number: US-BAYER-2016-086570

PATIENT
  Age: 22 Year
  Sex: Female
  Weight: 68.27 kg

DRUGS (12)
  1. ALBUTEROL SULFATE. [Concomitant]
     Active Substance: ALBUTEROL SULFATE
  2. MOBIC [Concomitant]
     Active Substance: MELOXICAM
  3. PROAIR HFA [Concomitant]
     Active Substance: ALBUTEROL SULFATE
     Indication: DYSPNOEA
  4. MORPHINE SULFATE. [Concomitant]
     Active Substance: MORPHINE SULFATE
  5. METHYLDOPA. [Concomitant]
     Active Substance: METHYLDOPA
  6. FLEXERIL [Concomitant]
     Active Substance: CYCLOBENZAPRINE HYDROCHLORIDE
  7. MIRENA [Suspect]
     Active Substance: LEVONORGESTREL
     Dosage: 20 MCG/24HR, CONT
     Route: 015
     Dates: start: 20090115, end: 20130129
  8. HYDROCODONE [Concomitant]
     Active Substance: HYDROCODONE
  9. TRAMADOL. [Concomitant]
     Active Substance: TRAMADOL
  10. TYLENOL WITH CODEINE [Concomitant]
     Active Substance: ACETAMINOPHEN\CODEINE PHOSPHATE
  11. NAPROXEN. [Concomitant]
     Active Substance: NAPROXEN
  12. PROMETHAZINE [Concomitant]
     Active Substance: PROMETHAZINE\PROMETHAZINE HYDROCHLORIDE

REACTIONS (3)
  - Abdominal pain lower [None]
  - Device issue [None]
  - Device difficult to use [None]

NARRATIVE: CASE EVENT DATE: 2009
